FAERS Safety Report 9125891 (Version 1)
Quarter: 2013Q1

REPORT INFORMATION
  Report Type: Spontaneous
  Country: US (occurrence: US)
  Receive Date: 20130121
  Receipt Date: 20130121
  Transmission Date: 20140127
  Serious: Yes (Life-Threatening, Other)
  Sender: FDA-Public Use
  Company Number: US-JNJFOC-20130108365

PATIENT
  Sex: 0

DRUGS (1)
  1. FENTANYL [Suspect]
     Indication: PRODUCT USED FOR UNKNOWN INDICATION
     Route: 050

REACTIONS (4)
  - Drug administration error [Unknown]
  - Intentional drug misuse [Unknown]
  - Intentional drug misuse [Unknown]
  - Drug administered to patient of inappropriate age [Unknown]
